FAERS Safety Report 16321216 (Version 1)
Quarter: 2019Q2

REPORT INFORMATION
  Report Type: Spontaneous
  Country: AU (occurrence: AU)
  Receive Date: 20190516
  Receipt Date: 20190516
  Transmission Date: 20190711
  Serious: Yes (Other)
  Sender: FDA-Public Use
  Company Number: AU-PFIZER INC-2019204136

PATIENT
  Age: 44 Year
  Sex: Female

DRUGS (2)
  1. METHOTREXATE. [Suspect]
     Active Substance: METHOTREXATE
  2. MINULET [Suspect]
     Active Substance: ETHINYL ESTRADIOL\GESTODENE

REACTIONS (5)
  - Weight fluctuation [Unknown]
  - Dysmenorrhoea [Unknown]
  - Endometriosis [Unknown]
  - Psoriatic arthropathy [Not Recovered/Not Resolved]
  - Multiple sclerosis [Not Recovered/Not Resolved]
